FAERS Safety Report 8803302 (Version 1)
Quarter: 2012Q4

REPORT INFORMATION
  Report Type: 
  Country: CH (occurrence: CH)
  Receive Date: 20120924
  Receipt Date: 20120924
  Transmission Date: 20130627
  Serious: Yes (Hospitalization)
  Sender: FDA-Public Use
  Company Number: CH-009507513-1209CHE007994

PATIENT
  Age: 61 Year
  Sex: Male
  Weight: 90 kg

DRUGS (17)
  1. ATACAND PLUS [Suspect]
     Dosage: 28.5 mg, qd (0.5per 1 day)(16mg candesartan/12.5mg HCT)
     Route: 048
  2. CYMBALTA [Suspect]
     Dosage: 60 mg, bid
     Route: 048
  3. ASPIRIN CARDIO [Suspect]
     Dosage: 100 mg, qd
     Route: 048
  4. CEFUROXIME [Concomitant]
     Dosage: 500 mg, bid
     Route: 048
  5. DAFALGAN [Concomitant]
     Dosage: 1 g, qid
     Route: 048
  6. DULCOLAX [Concomitant]
     Dosage: 5 mg, qd
     Route: 048
  7. ELTROXIN [Concomitant]
     Dosage: 50 microgram,qd
     Route: 048
  8. KETESSE [Concomitant]
     Dosage: 25 mg, bid
     Route: 048
  9. MAGNESIOCARD [Concomitant]
     Dosage: 5 mg, bid
     Route: 048
  10. PANTOZOL [Concomitant]
     Dosage: 20 mg, bid
     Route: 048
  11. REDORMIN (HOPS (+) VALERIAN) [Concomitant]
     Dosage: 500 mg, qd
     Route: 048
  12. REMERON [Suspect]
     Dosage: 45 mg, qd
     Route: 048
  13. IRFEN [Suspect]
     Dosage: 600 mg, tid (3nper 1 day)
     Route: 048
     Dates: start: 20120706
  14. LITHIOFOR [Suspect]
     Dosage: 660 mg, bid, 1-0-1/2
     Route: 048
     Dates: start: 20120706
  15. LYRICA [Suspect]
     Dosage: 75 mg, tid
     Route: 048
  16. OXYCONTIN [Suspect]
     Dosage: 10 mg, bid
     Route: 048
  17. TEMESTA [Suspect]
     Dosage: 1 mg, qd
     Route: 048

REACTIONS (5)
  - Drug level increased [Recovered/Resolved]
  - Ataxia [Recovered/Resolved]
  - Muscular weakness [Recovered/Resolved]
  - Somnolence [Recovered/Resolved]
  - Renal impairment [Recovered/Resolved]
